FAERS Safety Report 9908237 (Version 1)
Quarter: 2013Q2

REPORT INFORMATION
  Report Type: Spontaneous
  Country: US (occurrence: None)
  Receive Date: 20130305
  Receipt Date: 20130305
  Transmission Date: 20140414
  Serious: Yes (Hospitalization)
  Sender: FDA-Public Use
  Company Number: 163-21880-12121283

PATIENT
  Age: 72 Year
  Sex: Female
  Weight: 66.23 kg

DRUGS (14)
  1. REVLIMID (LENALIDOMIDE) (5 MILLIGRAM, CAPSULES) [Suspect]
     Indication: MYELODYSPLASTIC SYNDROME
     Dosage: 5 MG , 1 IN 3 D, PO 07/24/2007- ONGOING THERAPY DATES
     Dates: start: 20070724
  2. PREDNISOLONE (PREDNISOLONE) [Concomitant]
  3. PROCARDIA XL (NIFEDIPINE) [Concomitant]
  4. LIPITOR (ATORVASTATIN) [Concomitant]
  5. POTASSIUM (POTASSIUM) [Concomitant]
  6. METOPROLOL (METOPROLOL) [Concomitant]
  7. PROMIDONE (PRIMIDONE) [Concomitant]
  8. COLESTIPOL (COLESTIPOL) [Concomitant]
  9. SERTRALINE (SERTRALINE) [Concomitant]
  10. TRAZODONE (TRAZODONE) [Concomitant]
  11. ASPIRIN (ACETYLSALICYLIC ACID) [Concomitant]
  12. ALLOPURINOL (ALLOPURINOL) [Concomitant]
  13. SPRIONOLACTONE-HCTZ (ALDACTAZIDE A) [Concomitant]
  14. LEVOTHYROXINE (LEVOTHYROXINE) [Concomitant]

REACTIONS (4)
  - Full blood count decreased [None]
  - Memory impairment [None]
  - Nasopharyngitis [None]
  - Malaise [None]
